FAERS Safety Report 24239892 (Version 1)
Quarter: 2024Q3

REPORT INFORMATION
  Report Type: Report from Study
  Country: US (occurrence: None)
  Receive Date: 20240822
  Receipt Date: 20240822
  Transmission Date: 20241017
  Serious: Yes (Hospitalization)
  Sender: ASTRAZENECA
  Company Number: 2021A578785

PATIENT
  Sex: Female

DRUGS (1)
  1. FASENRA [Suspect]
     Active Substance: BENRALIZUMAB
     Indication: Asthma
     Dosage: 30MG/ML AT WEEK 4 AND 8 THEN EVERY 8 WEEKS THEREAFTER
     Route: 058
     Dates: start: 202106

REACTIONS (1)
  - Illness [Not Recovered/Not Resolved]
